FAERS Safety Report 24073782 (Version 1)
Quarter: 2024Q3

REPORT INFORMATION
  Report Type: Report from Study
  Country: CA (occurrence: CA)
  Receive Date: 20240710
  Receipt Date: 20240710
  Transmission Date: 20241016
  Serious: Yes (Other)
  Sender: PIERRE FABRE MEDICAMENT
  Company Number: CA-PFM-2020-22588

PATIENT
  Age: 45 Year
  Sex: Female

DRUGS (7)
  1. PROPRANOLOL HYDROCHLORIDE [Suspect]
     Active Substance: PROPRANOLOL HYDROCHLORIDE
     Indication: Migraine
     Dosage: UNK
     Route: 065
  2. PROPRANOLOL HYDROCHLORIDE [Suspect]
     Active Substance: PROPRANOLOL HYDROCHLORIDE
     Indication: Off label use
  3. AIMOVIG [Suspect]
     Active Substance: ERENUMAB-AOOE
     Indication: Migraine
     Dosage: UNK
     Route: 065
  4. CANDESARTAN [Suspect]
     Active Substance: CANDESARTAN
     Indication: Migraine
     Dosage: UNK
     Route: 065
  5. TOPIRAMATE [Suspect]
     Active Substance: TOPIRAMATE
     Indication: Migraine
     Dosage: UNK
     Route: 065
  6. DIVALPROEX SODIUM [Suspect]
     Active Substance: DIVALPROEX SODIUM
     Indication: Migraine
     Dosage: UNK
     Route: 065
  7. BOTULINUM TOXIN TYPE A [Concomitant]
     Active Substance: BOTULINUM TOXIN TYPE A
     Indication: Migraine
     Dosage: UNK
     Route: 065

REACTIONS (7)
  - Hand fracture [Unknown]
  - Disturbance in attention [Unknown]
  - Feeling abnormal [Unknown]
  - Hypotension [Unknown]
  - Drug ineffective for unapproved indication [Unknown]
  - Product use issue [Unknown]
  - Off label use [Unknown]
